FAERS Safety Report 6184940-1 (Version None)
Quarter: 2009Q2

REPORT INFORMATION
  Report Type: 
  Country: None (occurrence: None)
  Receive Date: 20090511
  Receipt Date: 20090430
  Transmission Date: 20091009
  Serious: Yes (Death, Other)
  Sender: FDA-Public Use
  Company Number: JP-BRISTOL-MYERS SQUIBB COMPANY-14575484

PATIENT
  Age: 54 Year
  Sex: Male

DRUGS (5)
  1. SPRYCEL [Suspect]
     Indication: CHRONIC MYELOID LEUKAEMIA
     Route: 048
     Dates: start: 20090330, end: 20090401
  2. AMBISOME [Suspect]
     Dosage: INITIATED ON 30MAR09
     Route: 042
     Dates: start: 20090401, end: 20090401
  3. VINDESINE SULFATE [Concomitant]
     Dates: start: 20090318, end: 20090318
  4. PREDNISOLONE [Concomitant]
     Dates: start: 20090329, end: 20090401
  5. OMEPRAZOLE [Concomitant]

REACTIONS (6)
  - BLOOD CREATINE PHOSPHOKINASE INCREASED [None]
  - GASTROINTESTINAL HAEMORRHAGE [None]
  - GENERALISED OEDEMA [None]
  - MULTI-ORGAN FAILURE [None]
  - MUSCULAR WEAKNESS [None]
  - PULMONARY HAEMORRHAGE [None]
